FAERS Safety Report 7902013-1 (Version None)
Quarter: 2011Q4

REPORT INFORMATION
  Report Type: 
  Country: None (occurrence: None)
  Receive Date: 20111108
  Receipt Date: 20111031
  Transmission Date: 20120403
  Serious: Yes (Other)
  Sender: FDA-Public Use
  Company Number: US-GLAXOSMITHKLINE-A0949605A

PATIENT
  Age: 59 Year
  Sex: Male

DRUGS (9)
  1. PROTONIX [Concomitant]
  2. ASACOL [Concomitant]
  3. METFFORMIN HYDROCHLORIDE [Concomitant]
  4. PREDNISONE [Concomitant]
  5. MERCAPTOPURINE [Concomitant]
     Indication: CROHN'S DISEASE
  6. PROMACTA [Suspect]
     Indication: THROMBOCYTOPENIA
     Route: 048
     Dates: start: 20101025, end: 20101029
  7. XANAX [Concomitant]
  8. METOPROLOL [Concomitant]
  9. CORTICOSTEROIDS [Concomitant]
     Indication: THROMBOCYTOPENIA
     Dates: start: 20100330

REACTIONS (2)
  - PLATELET COUNT DECREASED [None]
  - EPISTAXIS [None]
